FAERS Safety Report 5669812-0 (Version None)
Quarter: 2008Q1

REPORT INFORMATION
  Report Type: 
  Country: None (occurrence: None)
  Receive Date: 20080317
  Receipt Date: 20080305
  Transmission Date: 20080703
  Serious: Yes (Hospitalization)
  Sender: FDA-Public Use
  Company Number: PL-PFIZER INC-2007070274

PATIENT
  Sex: Male

DRUGS (2)
  1. CLINDAMYCIN HCL [Suspect]
     Indication: ARTHRITIS
     Dates: start: 20070504, end: 20070509
  2. OLFEN [Concomitant]
     Indication: ARTHRITIS
     Dates: start: 20070504, end: 20070509

REACTIONS (2)
  - DYSPNOEA [None]
  - URTICARIA [None]
